FAERS Safety Report 6637463-7 (Version None)
Quarter: 2010Q1

REPORT INFORMATION
  Report Type: 
  Country: None (occurrence: None)
  Receive Date: 20100316
  Receipt Date: 20100302
  Transmission Date: 20100710
  Serious: Yes (Other)
  Sender: FDA-Public Use
  Company Number: FI-ABBOTT-10P-055-0629935-00

PATIENT
  Age: 64 Year
  Sex: Female

DRUGS (2)
  1. DEPAKENE [Suspect]
     Indication: EPILEPSY
     Dosage: EXTENDED RELEASE
     Dates: start: 20090101
  2. DEPAKENE [Suspect]
     Dosage: EXTENDED RELEASE

REACTIONS (3)
  - DRUG INEFFECTIVE [None]
  - EPILEPSY [None]
  - PRODUCT QUALITY ISSUE [None]
